FAERS Safety Report 16323381 (Version 2)
Quarter: 2019Q2

REPORT INFORMATION
  Report Type: Spontaneous
  Country: DE (occurrence: DE)
  Receive Date: 20190517
  Receipt Date: 20190527
  Transmission Date: 20190711
  Serious: Yes (Death, Hospitalization)
  Sender: FDA-Public Use
  Company Number: DE-SA-2019SA131775

PATIENT
  Sex: Male

DRUGS (1)
  1. CLEXANE [Suspect]
     Active Substance: ENOXAPARIN SODIUM
     Indication: JOINT INJURY
     Dosage: 60 MG, QD
     Route: 065

REACTIONS (2)
  - Pulmonary embolism [Fatal]
  - Brain death [Fatal]

NARRATIVE: CASE EVENT DATE: 20190509
